FAERS Safety Report 9903361 (Version 1)
Quarter: 2014Q1

REPORT INFORMATION
  Report Type: Spontaneous
  Country: US (occurrence: US)
  Receive Date: 20140217
  Receipt Date: 20140217
  Transmission Date: 20141002
  Serious: No
  Sender: FDA-Public Use
  Company Number: US-GILEAD-2012-0052347

PATIENT
  Age: 69 Year
  Sex: Male

DRUGS (1)
  1. LETAIRIS [Suspect]
     Indication: PRODUCT USED FOR UNKNOWN INDICATION
     Dosage: 5 MG, UNK
     Route: 048
     Dates: start: 20111128

REACTIONS (6)
  - Pain in extremity [Unknown]
  - Paraesthesia [Unknown]
  - Dyspnoea [Unknown]
  - Headache [Unknown]
  - Sinus congestion [Unknown]
  - Oedema peripheral [Unknown]
